FAERS Safety Report 9522922 (Version 3)
Quarter: 2013Q3

REPORT INFORMATION
  Report Type: Report from Study
  Country: US (occurrence: US)
  Receive Date: 20130913
  Receipt Date: 20130925
  Transmission Date: 20140515
  Serious: Yes (Hospitalization)
  Sender: FDA-Public Use
  Company Number: US-JNJFOC-20130903686

PATIENT
  Age: 10 Year
  Sex: Male
  Weight: 33.93 kg

DRUGS (2)
  1. REMICADE [Suspect]
     Indication: INFLAMMATORY BOWEL DISEASE
     Route: 042
     Dates: start: 20110413
  2. REMICADE [Suspect]
     Indication: INFLAMMATORY BOWEL DISEASE
     Route: 042
     Dates: start: 20130213

REACTIONS (1)
  - Clostridium difficile infection [Recovered/Resolved]
